FAERS Safety Report 26160904 (Version 1)
Quarter: 2025Q4

REPORT INFORMATION
  Report Type: Spontaneous
  Country: GB (occurrence: GB)
  Receive Date: 20251216
  Receipt Date: 20251216
  Transmission Date: 20260118
  Serious: Yes (Death, Hospitalization, Other)
  Sender: SAMSUNG BIOEPIS
  Company Number: GB-SAMSUNG BIOEPIS-SB-2025-41431

PATIENT
  Age: 75 Year
  Sex: Female

DRUGS (1)
  1. ADALIMUMAB [Suspect]
     Active Substance: ADALIMUMAB
     Indication: Ankylosing spondylitis
     Dates: start: 2022

REACTIONS (7)
  - Sepsis [Fatal]
  - Septic embolus [Fatal]
  - Osteoporotic fracture [Unknown]
  - Emphysema [Unknown]
  - Deformity thorax [Unknown]
  - Inflammatory bowel disease [Unknown]
  - Infection [Unknown]
